FAERS Safety Report 14477217 (Version 1)
Quarter: 2018Q1

REPORT INFORMATION
  Report Type: Report from Study
  Country: US (occurrence: US)
  Receive Date: 20180201
  Receipt Date: 20180201
  Transmission Date: 20180509
  Serious: No
  Sender: FDA-Public Use
  Company Number: US-EXELIXIS-CABO-17010496

PATIENT
  Sex: Female

DRUGS (16)
  1. TRANSDERM SCOP [Concomitant]
     Active Substance: SCOPOLAMINE
  2. SERTRALINE [Concomitant]
     Active Substance: SERTRALINE HYDROCHLORIDE
  3. CALCIUM [Concomitant]
     Active Substance: CALCIUM
  4. TRAMADOL HCL [Concomitant]
     Active Substance: TRAMADOL HYDROCHLORIDE
  5. ONDANSETRON [Concomitant]
     Active Substance: ONDANSETRON
  6. CABOMETYX [Suspect]
     Active Substance: CABOZANTINIB S-MALATE
     Indication: RENAL CANCER
     Dosage: 40 MG, QD
     Route: 048
     Dates: start: 20170911
  7. LOSARTAN AND HYDROCHLOROTHIAZIDE [Concomitant]
     Active Substance: HYDROCHLOROTHIAZIDE\LOSARTAN POTASSIUM
  8. PROMETHAZINE [Concomitant]
     Active Substance: PROMETHAZINE\PROMETHAZINE HYDROCHLORIDE
  9. ATORVASTATIN [Concomitant]
     Active Substance: ATORVASTATIN
  10. OMEPRAZOLE. [Concomitant]
     Active Substance: OMEPRAZOLE
  11. MEMANTINE. [Concomitant]
     Active Substance: MEMANTINE
  12. PILOCARPINE. [Concomitant]
     Active Substance: PILOCARPINE
  13. OXYCODONE [Concomitant]
     Active Substance: OXYCODONE
  14. MORPHINE SULF [Concomitant]
     Active Substance: MORPHINE SULFATE
  15. MEMANTINE HCL [Concomitant]
     Active Substance: MEMANTINE
  16. TYLENOL [Concomitant]
     Active Substance: ACETAMINOPHEN

REACTIONS (3)
  - Nausea [Not Recovered/Not Resolved]
  - Oral pain [Unknown]
  - Dyspepsia [Unknown]
